FAERS Safety Report 4430860-X (Version None)
Quarter: 2004Q3

REPORT INFORMATION
  Report Type: 
  Country: None (occurrence: None)
  Receive Date: 20040823
  Receipt Date: 20030505
  Transmission Date: 20050211
  Serious: Yes (Hospitalization)
  Sender: FDA-Public Use
  Company Number: FR-GLAXOSMITHKLINE-B0298963A

PATIENT
  Sex: Male

DRUGS (8)
  1. RETROVIR [Suspect]
     Indication: ANTIVIRAL PROPHYLAXIS
     Dosage: 1.2ML PER DAY
     Route: 048
     Dates: start: 20020110, end: 20020208
  2. RETROVIR [Suspect]
     Dates: start: 20020110, end: 20020110
  3. COMBIVIR [Suspect]
     Indication: HIV INFECTION
     Dates: start: 20010101
  4. VIRAMUNE [Suspect]
     Indication: HIV INFECTION
     Dates: start: 20010101
  5. BACTRIM [Concomitant]
     Dosage: 1TAB PER DAY
  6. DEROXAT [Concomitant]
  7. RULID [Concomitant]
  8. FLAGYL [Concomitant]

REACTIONS (6)
  - ANAEMIA [None]
  - BLOOD CREATINE PHOSPHOKINASE INCREASED [None]
  - BLOOD LACTIC ACID INCREASED [None]
  - LIPASE INCREASED [None]
  - MACROCYTOSIS [None]
  - NEUTROPENIA [None]
